FAERS Safety Report 21423922 (Version 1)
Quarter: 2022Q4

REPORT INFORMATION
  Report Type: Report from Study
  Country: IN (occurrence: IN)
  Receive Date: 20221007
  Receipt Date: 20221007
  Transmission Date: 20230112
  Serious: Yes (Hospitalization)
  Sender: FDA-Public Use
  Company Number: IN-AstraZeneca-2022A330354

PATIENT
  Age: 63 Year
  Sex: Male
  Weight: 51.9 kg

DRUGS (6)
  1. FAM-TRASTUZUMAB DERUXTECAN-NXKI [Suspect]
     Active Substance: FAM-TRASTUZUMAB DERUXTECAN-NXKI
     Indication: Non-small cell lung cancer metastatic
     Dosage: 5.4 MG/KG
     Route: 042
     Dates: start: 20220914, end: 20220914
  2. CHLORHEXIDINE [Concomitant]
     Active Substance: CHLORHEXIDINE
     Indication: Mucosal inflammation
     Route: 048
     Dates: start: 20220915
  3. MUCAINE GEL [Concomitant]
     Indication: Mucosal inflammation
     Dosage: 2.0 OTHER TEASPOON 3 TIMES PER DAY
     Route: 048
     Dates: start: 20220915
  4. BISOPROLOL FUMARATE [Concomitant]
     Active Substance: BISOPROLOL FUMARATE
     Indication: Hypertension
     Dosage: 1.0 TABLET DAILY
     Route: 048
     Dates: start: 20220711
  5. ATORVASTATIN [Concomitant]
     Active Substance: ATORVASTATIN
     Indication: Prophylaxis
     Dosage: 20 MG
     Route: 048
     Dates: start: 20220711
  6. ENTEHEP [Concomitant]
     Indication: Hepatitis B
     Dosage: 1 MG
     Route: 048
     Dates: start: 20220727

REACTIONS (1)
  - Gastroenteritis [Recovered/Resolved]

NARRATIVE: CASE EVENT DATE: 20220917
